FAERS Safety Report 25731923 (Version 1)
Quarter: 2025Q3

REPORT INFORMATION
  Report Type: Spontaneous
  Country: US (occurrence: US)
  Receive Date: 20250827
  Receipt Date: 20250827
  Transmission Date: 20251020
  Serious: No
  Sender: MYLAN
  Company Number: US-MYLANLABS-2025M1073357

PATIENT
  Age: 38 Year
  Sex: Female
  Weight: 64.41 kg

DRUGS (5)
  1. SPIRONOLACTONE [Suspect]
     Active Substance: SPIRONOLACTONE
     Indication: Polycystic ovaries
  2. SPIRONOLACTONE [Suspect]
     Active Substance: SPIRONOLACTONE
     Indication: Hirsutism
     Dosage: 100 MILLIGRAM, AM (2 TABLETS,50 MG) (IN THE MORNING WITH WATER AND FOOD)
     Dates: start: 2019
  3. SPIRONOLACTONE [Suspect]
     Active Substance: SPIRONOLACTONE
     Indication: Acne
  4. ADDERALL [Concomitant]
     Active Substance: AMPHETAMINE ASPARTATE\AMPHETAMINE SULFATE\DEXTROAMPHETAMINE SACCHARATE\DEXTROAMPHETAMINE SULFATE
     Dosage: 30 MILLIGRAM, BID (IN THE MORNING AND IN THE AFTERNOON)
  5. CRYSELLE [Concomitant]
     Active Substance: ETHINYL ESTRADIOL\NORGESTREL

REACTIONS (13)
  - Fatigue [Unknown]
  - Asthenia [Not Recovered/Not Resolved]
  - Adverse drug reaction [Unknown]
  - Fluid retention [Not Recovered/Not Resolved]
  - Distractibility [Unknown]
  - Feeling abnormal [Unknown]
  - Acne [Not Recovered/Not Resolved]
  - Loss of personal independence in daily activities [Not Recovered/Not Resolved]
  - Abdominal distension [Not Recovered/Not Resolved]
  - Hair disorder [Unknown]
  - Skin disorder [Unknown]
  - Off label use [Unknown]
  - Product formulation issue [Unknown]

NARRATIVE: CASE EVENT DATE: 20230322
